FAERS Safety Report 8801181 (Version 1)
Quarter: 2012Q4

REPORT INFORMATION
  Report Type: 
  Country: FR (occurrence: FR)
  Receive Date: 20120921
  Receipt Date: 20120921
  Transmission Date: 20130627
  Serious: Yes (Other)
  Sender: FDA-Public Use
  Company Number: FR-TEVA-355985ISR

PATIENT
  Age: 49 Year
  Sex: Female

DRUGS (1)
  1. ECOBEC [Suspect]
     Dosage: 4 Dosage forms Daily; On request
     Route: 055

REACTIONS (1)
  - Cough [Recovered/Resolved]
